FAERS Safety Report 5535010-4 (Version None)
Quarter: 2007Q4

REPORT INFORMATION
  Report Type: 
  Country: None (occurrence: None)
  Receive Date: 20071205
  Receipt Date: 20071128
  Transmission Date: 20080405
  Serious: Yes (Life-Threatening)
  Sender: FDA-Public Use
  Company Number: JP-MERCK-0712USA01083

PATIENT
  Age: 75 Year
  Sex: Male

DRUGS (3)
  1. ZETIA [Suspect]
     Indication: HYPERCHOLESTEROLAEMIA
     Route: 048
     Dates: start: 20071112, end: 20071122
  2. CEFOTIAM HYDROCHLORIDE [Concomitant]
     Route: 065
     Dates: start: 20071120, end: 20071121
  3. CEFDITOREN PIVOXIL [Concomitant]
     Route: 065
     Dates: start: 20071122

REACTIONS (1)
  - BLOOD GLUCOSE INCREASED [None]
